FAERS Safety Report 14895838 (Version 5)
Quarter: 2023Q2

REPORT INFORMATION
  Report Type: Other
  Country: CA (occurrence: None)
  Receive Date: 20180515
  Receipt Date: 20230501
  Transmission Date: 20230722
  Serious: Yes (Other)
  Sender: FDA-Public Use
  Company Number: CA-ROCHE-2079459

PATIENT
  Sex: Female
  Weight: 77.2 kg

DRUGS (12)
  1. ACTEMRA [Suspect]
     Active Substance: TOCILIZUMAB
     Indication: Rheumatoid arthritis
     Route: 042
     Dates: start: 20170126, end: 20170815
  2. ACTEMRA [Suspect]
     Active Substance: TOCILIZUMAB
     Route: 042
     Dates: start: 20170912
  3. PAXIL [Concomitant]
     Active Substance: PAROXETINE HYDROCHLORIDE
  4. LEFLUNOMIDE [Concomitant]
     Active Substance: LEFLUNOMIDE
  5. VENTOLIN [Concomitant]
     Active Substance: ALBUTEROL SULFATE
  6. TYLENOL [Concomitant]
     Active Substance: ACETAMINOPHEN
  7. PREDNISONE [Concomitant]
     Active Substance: PREDNISONE
  8. LEVOTHROID [Concomitant]
     Active Substance: LEVOTHYROXINE SODIUM
  9. RAMIPRIL [Concomitant]
     Active Substance: RAMIPRIL
  10. OMEGA 3 [Concomitant]
     Active Substance: CAPSAICIN
  11. FOLIC ACID [Concomitant]
     Active Substance: FOLIC ACID
  12. NITROFURANTOIN [Concomitant]
     Active Substance: NITROFURANTOIN
     Route: 048
     Dates: end: 20210804

REACTIONS (19)
  - Dyspnoea [Unknown]
  - Asthma [Unknown]
  - Throat irritation [Not Recovered/Not Resolved]
  - Respiratory tract congestion [Not Recovered/Not Resolved]
  - Influenza [Unknown]
  - Bronchitis [Unknown]
  - Pain [Not Recovered/Not Resolved]
  - Gait disturbance [Not Recovered/Not Resolved]
  - Oropharyngeal pain [Unknown]
  - Cough [Not Recovered/Not Resolved]
  - Arthralgia [Recovering/Resolving]
  - Fatigue [Unknown]
  - Joint stiffness [Unknown]
  - Tendon disorder [Unknown]
  - Weight increased [Unknown]
  - Bursitis [Unknown]
  - Pyrexia [Unknown]
  - Pain [Unknown]
  - Malaise [Unknown]

NARRATIVE: CASE EVENT DATE: 20180101
